FAERS Safety Report 7918448-7 (Version None)
Quarter: 2011Q4

REPORT INFORMATION
  Report Type: 
  Country: None (occurrence: None)
  Receive Date: 20111116
  Receipt Date: 20111111
  Transmission Date: 20120403
  Serious: Yes (Other)
  Sender: FDA-Public Use
  Company Number: PHHY2011NZ94536

PATIENT
  Sex: Female

DRUGS (2)
  1. LITHIUM CARBONATE [Concomitant]
  2. GLEEVEC [Suspect]
     Indication: CHRONIC MYELOID LEUKAEMIA
     Dosage: 200 MG, BID
     Route: 065

REACTIONS (2)
  - AMNESIA [None]
  - MEMORY IMPAIRMENT [None]
